FAERS Safety Report 5805068-3 (Version None)
Quarter: 2008Q3

REPORT INFORMATION
  Report Type: 
  Country: None (occurrence: None)
  Receive Date: 20080709
  Receipt Date: 20080627
  Transmission Date: 20090109
  Serious: Yes (Other)
  Sender: FDA-Public Use
  Company Number: US-PFIZER INC-2008055838

PATIENT
  Sex: Female
  Weight: 64.4 kg

DRUGS (6)
  1. CHANTIX [Suspect]
     Indication: SMOKING CESSATION THERAPY
  2. TYSABRI [Suspect]
     Indication: MULTIPLE SCLEROSIS
     Route: 042
  3. HYDROCODONE [Concomitant]
  4. RELPAX [Concomitant]
  5. TEMAZEPAM [Concomitant]
  6. ALPRAZOLAM [Concomitant]
     Indication: NERVOUSNESS

REACTIONS (3)
  - DIZZINESS [None]
  - EYE SWELLING [None]
  - RASH [None]
